FAERS Safety Report 6358568-4 (Version None)
Quarter: 2009Q3

REPORT INFORMATION
  Report Type: 
  Country: None (occurrence: None)
  Receive Date: 20090914
  Receipt Date: 20090901
  Transmission Date: 20100115
  Serious: Yes (Death, Hospitalization)
  Sender: FDA-Public Use
  Company Number: 2009-01853

PATIENT
  Age: 66 Year
  Sex: Male
  Weight: 89.4 kg

DRUGS (2)
  1. VELCADE [Suspect]
     Indication: ACUTE MYELOID LEUKAEMIA
     Dosage: 1.3 MG/M2; IV BOLUS
     Route: 040
     Dates: start: 20090413, end: 20090427
  2. DECITABINE(DECITABINE) INJECTION [Suspect]
     Indication: ACUTE MYELOID LEUKAEMIA
     Dosage: 20 MG/M2, INTRAVENOUS
     Route: 042
     Dates: start: 20090413, end: 20090422

REACTIONS (14)
  - BACTERAEMIA [None]
  - BLOOD CULTURE POSITIVE [None]
  - BRONCHOSCOPY ABNORMAL [None]
  - ENTEROCOCCAL INFECTION [None]
  - FLUID OVERLOAD [None]
  - INFECTION [None]
  - NEUTROPENIA [None]
  - OEDEMA PERIPHERAL [None]
  - PLEURAL EFFUSION [None]
  - PNEUMONIA [None]
  - PULMONARY FIBROSIS [None]
  - RESPIRATORY DISTRESS [None]
  - STAPHYLOCOCCAL INFECTION [None]
  - TROPONIN I INCREASED [None]
